FAERS Safety Report 11898793 (Version 3)
Quarter: 2016Q1

REPORT INFORMATION
  Report Type: Spontaneous
  Country: US (occurrence: US)
  Receive Date: 20160108
  Receipt Date: 20160225
  Transmission Date: 20160526
  Serious: Yes (Hospitalization, Other)
  Sender: FDA-Public Use
  Company Number: US-TEVA-623589USA

PATIENT
  Age: 39 Year
  Sex: Female

DRUGS (10)
  1. QUETIAPINE FUMARATE. [Suspect]
     Active Substance: QUETIAPINE FUMARATE
     Indication: HEPATO-LENTICULAR DEGENERATION
     Dosage: 25 MILLIGRAM DAILY;
     Route: 065
  2. QUETIAPINE FUMARATE. [Suspect]
     Active Substance: QUETIAPINE FUMARATE
     Indication: HEPATO-LENTICULAR DEGENERATION
     Dosage: 50 MILLIGRAM DAILY;
     Route: 065
  3. QUETIAPINE FUMARATE. [Suspect]
     Active Substance: QUETIAPINE FUMARATE
     Dosage: 12.5 MILLIGRAM DAILY;
     Route: 065
  4. HALOPERIDOL. [Suspect]
     Active Substance: HALOPERIDOL
     Indication: HEPATO-LENTICULAR DEGENERATION
     Dosage: 20 MILLIGRAM DAILY;
     Route: 065
  5. ZINC [Concomitant]
     Active Substance: ZINC\ZINC CHLORIDE
     Indication: HEPATO-LENTICULAR DEGENERATION
     Route: 065
  6. QUETIAPINE FUMARATE. [Suspect]
     Active Substance: QUETIAPINE FUMARATE
     Dosage: 400 MILLIGRAM DAILY;
     Route: 065
  7. PREDNISONE. [Concomitant]
     Active Substance: PREDNISONE
     Indication: COLITIS
     Dosage: 40 MILLIGRAM DAILY;
     Route: 065
  8. QUETIAPINE FUMARATE. [Suspect]
     Active Substance: QUETIAPINE FUMARATE
     Dosage: 75 MILLIGRAM DAILY;
     Route: 065
  9. TRIENTINE [Concomitant]
     Active Substance: TRIENTINE
     Indication: HEPATO-LENTICULAR DEGENERATION
     Route: 065
  10. OLANZAPINE. [Suspect]
     Active Substance: OLANZAPINE
     Indication: HEPATO-LENTICULAR DEGENERATION
     Route: 065

REACTIONS (5)
  - Parkinsonism [Recovered/Resolved]
  - Colitis [Unknown]
  - Sedation [Unknown]
  - Dystonia [Unknown]
  - Orthostatic hypotension [Unknown]
